FAERS Safety Report 23438026 (Version 2)
Quarter: 2024Q1

REPORT INFORMATION
  Report Type: Report from Study
  Country: ZA (occurrence: ZA)
  Receive Date: 20240124
  Receipt Date: 20240226
  Transmission Date: 20240410
  Serious: Yes (Death, Other)
  Sender: FDA-Public Use
  Company Number: ZA-BAYER-2024A013556

PATIENT
  Sex: Female

DRUGS (2)
  1. EYLEA [Suspect]
     Active Substance: AFLIBERCEPT
     Indication: Neovascular age-related macular degeneration
     Dosage: 2X VIAL (BILATERAL) ; SOLUTION FOR INJECTION; STRENGTH: 40 MG/ML
     Dates: start: 20220318, end: 20221209
  2. EYLEA [Suspect]
     Active Substance: AFLIBERCEPT
     Dosage: UNK; SOLUTION FOR INJECTION; STRENGTH: 40 MG/ML
     Dates: start: 20221013

REACTIONS (1)
  - Death [Fatal]
